FAERS Safety Report 8312087 (Version 3)
Quarter: 2015Q3

REPORT INFORMATION
  Report Type: Report from Study
  Country: DE (occurrence: DE)
  Receive Date: 20111227
  Receipt Date: 20150701
  Transmission Date: 20151125
  Serious: Yes (Hospitalization)
  Sender: FDA-Public Use
  Company Number: DE-ROCHE-585331

PATIENT
  Age: 78 Year
  Sex: Male
  Weight: 90 kg

DRUGS (12)
  1. RITUXIMAB [Suspect]
     Active Substance: RITUXIMAB
     Indication: DIFFUSE LARGE B-CELL LYMPHOMA
     Dosage: FREQUENCY REPORTED AS 14D. FORM REPORTED AS INFUSION.
     Route: 042
  2. CYCLOPHOSPHAMIDE. [Suspect]
     Active Substance: CYCLOPHOSPHAMIDE
     Indication: DIFFUSE LARGE B-CELL LYMPHOMA
     Dosage: FREQUENCY REPORTED AS 14D. FORM REPORTED AS INFUSION.
     Route: 042
  3. GRANOCYTE 34 [Concomitant]
     Active Substance: LENOGRASTIM
     Route: 065
  4. PREDNISONE. [Suspect]
     Active Substance: PREDNISONE
     Indication: DIFFUSE LARGE B-CELL LYMPHOMA
     Dosage: FREQUENCY REPORTED AS 5D/14D.
     Route: 048
  5. AMLODIPIN [Concomitant]
     Active Substance: AMLODIPINE BESYLATE
     Route: 065
  6. PLACEBO [Suspect]
     Active Substance: UNSPECIFIED INGREDIENT
     Indication: DIFFUSE LARGE B-CELL LYMPHOMA
     Dosage: FREQUENCY REPORTED AS 14 D. FORM REPORTED AS INFUSION.
     Route: 042
     Dates: start: 20080814
  7. DOXORUBICIN [Suspect]
     Active Substance: DOXORUBICIN
     Indication: DIFFUSE LARGE B-CELL LYMPHOMA
     Dosage: FREQUENCY REPORTED AS 14 D. FPORM REPORTED AS 250 ML
     Route: 042
  8. HYDROCHLOROTHIAZIDE. [Concomitant]
     Active Substance: HYDROCHLOROTHIAZIDE
     Route: 065
  9. SIMVASTATIN. [Concomitant]
     Active Substance: SIMVASTATIN
     Route: 065
  10. VINCRISTINE [Suspect]
     Active Substance: VINCRISTINE
     Indication: DIFFUSE LARGE B-CELL LYMPHOMA
     Dosage: FREQUENCY REPORTED AS 14, FORM REPORTED AS PUSH.
     Route: 042
  11. RAMIPRIL. [Concomitant]
     Active Substance: RAMIPRIL
     Route: 065
  12. CLEXANE [Concomitant]
     Active Substance: ENOXAPARIN SODIUM
     Route: 065

REACTIONS (3)
  - Atrial fibrillation [Recovered/Resolved]
  - Tachyarrhythmia [Recovering/Resolving]
  - Atrial fibrillation [Recovered/Resolved]

NARRATIVE: CASE EVENT DATE: 20080818
